FAERS Safety Report 17272360 (Version 1)
Quarter: 2020Q1

REPORT INFORMATION
  Report Type: Spontaneous
  Country: US (occurrence: US)
  Receive Date: 20200115
  Receipt Date: 20200115
  Transmission Date: 20200409
  Serious: No
  Sender: FDA-Public Use
  Company Number: NVSC2020US007503

PATIENT
  Age: 64 Year
  Sex: Female

DRUGS (4)
  1. DUREZOL [Suspect]
     Active Substance: DIFLUPREDNATE
     Indication: PRODUCT USED FOR UNKNOWN INDICATION
     Dosage: UNK
     Route: 047
     Dates: end: 20190604
  2. DUREZOL [Suspect]
     Active Substance: DIFLUPREDNATE
     Dosage: UNK UNK, QD
     Route: 047
     Dates: start: 20190718
  3. DUREZOL [Suspect]
     Active Substance: DIFLUPREDNATE
     Dosage: UNK UNK, QID (IN EACH EYE)
     Route: 047
     Dates: start: 20190927
  4. DUREZOL [Suspect]
     Active Substance: DIFLUPREDNATE
     Dosage: UNK UNK, BID (FOR 30 DAYS)
     Route: 047
     Dates: start: 20190620

REACTIONS (2)
  - Eye swelling [Recovering/Resolving]
  - Vision blurred [Recovering/Resolving]

NARRATIVE: CASE EVENT DATE: 20190620
